FAERS Safety Report 10731230 (Version 1)
Quarter: 2015Q1

REPORT INFORMATION
  Report Type: Spontaneous
  Country: US (occurrence: US)
  Receive Date: 20150122
  Receipt Date: 20150122
  Transmission Date: 20150721
  Serious: Yes (Other)
  Sender: FDA-Public Use
  Company Number: US-ALLERGAN-1500667US

PATIENT
  Age: 49 Year
  Sex: Female

DRUGS (4)
  1. BOTOX COSMETIC [Suspect]
     Active Substance: ONABOTULINUMTOXINA
     Indication: SKIN WRINKLING
     Dosage: 25 UNITS, SINGLE
     Route: 030
     Dates: start: 20140928, end: 20140928
  2. BOTOX COSMETIC [Suspect]
     Active Substance: ONABOTULINUMTOXINA
     Indication: SKIN WRINKLING
  3. AMLODIPINE [Concomitant]
     Active Substance: AMLODIPINE BESYLATE
     Indication: HYPERTENSION
     Dosage: 5 MG, UNK
  4. LISINOPRIL. [Concomitant]
     Active Substance: LISINOPRIL
     Indication: HYPERTENSION
     Dosage: 10 MG, UNK

REACTIONS (30)
  - Lymphadenopathy [Unknown]
  - Dysstasia [Unknown]
  - Feeling hot [Not Recovered/Not Resolved]
  - Disturbance in attention [Not Recovered/Not Resolved]
  - Tremor [Not Recovered/Not Resolved]
  - Feeling abnormal [Unknown]
  - Local swelling [Unknown]
  - Generalised oedema [Recovered/Resolved]
  - Odynophagia [Recovered/Resolved]
  - Movement disorder [Unknown]
  - Gastrointestinal motility disorder [Unknown]
  - Abdominal discomfort [Recovered/Resolved]
  - Dizziness [Unknown]
  - Swelling face [Unknown]
  - Pelvic pain [Unknown]
  - Malaise [Not Recovered/Not Resolved]
  - Fatigue [Unknown]
  - Mastication disorder [Recovered/Resolved]
  - Rash macular [Unknown]
  - Ataxia [Unknown]
  - Aphasia [Unknown]
  - Neck pain [Unknown]
  - VIIth nerve paralysis [Unknown]
  - Vision blurred [Unknown]
  - Ear swelling [Not Recovered/Not Resolved]
  - Erythema [Not Recovered/Not Resolved]
  - Muscle twitching [Not Recovered/Not Resolved]
  - Movement disorder [Not Recovered/Not Resolved]
  - Antinuclear antibody positive [Unknown]
  - Eye movement disorder [Unknown]

NARRATIVE: CASE EVENT DATE: 20141007
